FAERS Safety Report 24895189 (Version 1)
Quarter: 2025Q1

REPORT INFORMATION
  Report Type: Spontaneous
  Country: US (occurrence: US)
  Receive Date: 20250128
  Receipt Date: 20250128
  Transmission Date: 20250409
  Serious: No
  Sender: ALKERMES
  Company Number: US-ALKERMES INC.-ALK-2025-000153

PATIENT
  Age: 39 Year
  Sex: Female

DRUGS (3)
  1. VIVITROL [Suspect]
     Active Substance: NALTREXONE
     Indication: Alcoholism
     Route: 030
  2. SUBUTEX [Suspect]
     Active Substance: BUPRENORPHINE HYDROCHLORIDE
     Indication: Product used for unknown indication
     Route: 065
     Dates: start: 20250114, end: 20250114
  3. NALTREXONE [Suspect]
     Active Substance: NALTREXONE
     Indication: Alcoholism
     Route: 065

REACTIONS (4)
  - Contraindicated product administered [Unknown]
  - Alcoholic hangover [Unknown]
  - Alcohol use [Unknown]
  - Malaise [Unknown]

NARRATIVE: CASE EVENT DATE: 20250114
